FAERS Safety Report 6727642-2 (Version None)
Quarter: 2010Q2

REPORT INFORMATION
  Report Type: 
  Country: None (occurrence: None)
  Receive Date: 20100517
  Receipt Date: 20100511
  Transmission Date: 20101027
  Serious: Yes (Death, Other)
  Sender: FDA-Public Use
  Company Number: PHHO2005JP12291

PATIENT
  Sex: Male
  Weight: 47 kg

DRUGS (3)
  1. STI571/CGP57148B T35717+CAPS [Suspect]
     Indication: GASTROINTESTINAL STROMAL TUMOUR
     Dosage: 400 MG DAILY
     Route: 048
     Dates: start: 20041122, end: 20050214
  2. STI571/CGP57148B T35717+CAPS [Suspect]
     Dosage: 200 MG DAILY
     Route: 048
     Dates: start: 20070604, end: 20081201
  3. STI571/CGP57148B T35717+CAPS [Suspect]
     Dosage: 200 MG DAILY
     Route: 048
     Dates: start: 20090525, end: 20090924

REACTIONS (6)
  - DECREASED APPETITE [None]
  - HEPATORENAL FAILURE [None]
  - INTERSTITIAL LUNG DISEASE [None]
  - MARASMUS [None]
  - NASOPHARYNGITIS [None]
  - OEDEMA PERIPHERAL [None]
